FAERS Safety Report 24220779 (Version 1)
Quarter: 2024Q3

REPORT INFORMATION
  Report Type: Other
  Country: US (occurrence: US)
  Receive Date: 20240818
  Receipt Date: 20240818
  Transmission Date: 20241017
  Serious: Yes (Hospitalization)
  Sender: ORBION PHARMACEUTICALS
  Company Number: US-OrBion Pharmaceuticals Private Limited-2160575

PATIENT

DRUGS (2)
  1. DIVALPROEX SODIUM [Suspect]
     Active Substance: DIVALPROEX SODIUM
     Indication: Psychotic disorder
     Route: 065
  2. OLANZAPINE [Suspect]
     Active Substance: OLANZAPINE
     Route: 065

REACTIONS (4)
  - Periorbital oedema [Recovered/Resolved]
  - Face oedema [Recovered/Resolved]
  - Leukocytosis [Recovered/Resolved]
  - Hypernatraemia [Recovered/Resolved]
